FAERS Safety Report 23206334 (Version 1)
Quarter: 2023Q4

REPORT INFORMATION
  Report Type: Spontaneous
  Country: US (occurrence: US)
  Receive Date: 20231120
  Receipt Date: 20231120
  Transmission Date: 20240110
  Serious: Yes (Other)
  Sender: FDA-Public Use
  Company Number: US-002147023-NVSC2023US244245

PATIENT
  Age: 53 Year
  Sex: Male

DRUGS (6)
  1. TRIAMCINOLONE [Suspect]
     Active Substance: TRIAMCINOLONE
     Indication: Product used for unknown indication
     Dosage: 5 MG (RIGHT C4-5, C6-C7, LEFT C4-5, C6 AND C7)
     Route: 008
     Dates: start: 201806, end: 201811
  2. TRIAMCINOLONE [Suspect]
     Active Substance: TRIAMCINOLONE
     Dosage: 40 MG (IN C7-T1)
     Route: 008
     Dates: start: 201806, end: 201811
  3. TRIAMCINOLONE [Suspect]
     Active Substance: TRIAMCINOLONE
     Dosage: UNK (MULTIPLE INJECTIONS)
     Route: 008
     Dates: start: 2019
  4. DEXAMETHASONE [Suspect]
     Active Substance: DEXAMETHASONE
     Indication: Product used for unknown indication
     Dosage: 10 MG (IN EACH C4-5, C5-6 AND C6-7 FACET JOINTS)
     Route: 008
     Dates: start: 201806, end: 201811
  5. DEXAMETHASONE [Suspect]
     Active Substance: DEXAMETHASONE
     Dosage: UNK
     Route: 008
     Dates: start: 2019
  6. PREDNISONE [Concomitant]
     Active Substance: PREDNISONE
     Indication: Swelling face
     Dosage: UNK
     Route: 065

REACTIONS (2)
  - Pseudo Cushing^s syndrome [Unknown]
  - Incorrect route of product administration [Unknown]
